FAERS Safety Report 24526848 (Version 1)
Quarter: 2024Q4

REPORT INFORMATION
  Report Type: Spontaneous
  Country: US (occurrence: US)
  Receive Date: 20241021
  Receipt Date: 20241021
  Transmission Date: 20250115
  Serious: No
  Sender: ROCHE
  Company Number: US-ROCHE-3556818

PATIENT
  Age: 67 Year
  Sex: Female

DRUGS (2)
  1. ZELBORAF [Suspect]
     Active Substance: VEMURAFENIB
     Indication: Pituitary tumour
     Route: 048
     Dates: start: 202209
  2. ZELBORAF [Suspect]
     Active Substance: VEMURAFENIB
     Indication: Skin cancer

REACTIONS (2)
  - Hair texture abnormal [Unknown]
  - Off label use [Unknown]

NARRATIVE: CASE EVENT DATE: 20220901
